FAERS Safety Report 24042101 (Version 4)
Quarter: 2024Q4

REPORT INFORMATION
  Report Type: Spontaneous
  Country: US (occurrence: US)
  Receive Date: 20240702
  Receipt Date: 20241112
  Transmission Date: 20250115
  Serious: No
  Sender: SANOFI AVENTIS
  Company Number: US-SA-SAC20240626000076

PATIENT
  Age: 32 Year
  Sex: Male

DRUGS (10)
  1. ELOCTATE [Suspect]
     Active Substance: EFMOROCTOCOG ALFA
     Indication: Factor VIII deficiency
     Dosage: 2906 U, EVERY 24 HOURS FOR BREAKTHROUGH BLEEDING
     Route: 042
     Dates: start: 20180630
  2. ELOCTATE [Suspect]
     Active Substance: EFMOROCTOCOG ALFA
     Indication: Factor VIII deficiency
     Dosage: 2906 U, EVERY 24 HOURS FOR BREAKTHROUGH BLEEDING
     Route: 042
     Dates: start: 20180630
  3. ELOCTATE [Suspect]
     Active Substance: EFMOROCTOCOG ALFA
     Dosage: 2859 U, EVERY 24 HOURS FOR BREAKTHROUGH BLEEDING
     Route: 042
     Dates: start: 20180630
  4. ELOCTATE [Suspect]
     Active Substance: EFMOROCTOCOG ALFA
     Dosage: 2859 U, EVERY 24 HOURS FOR BREAKTHROUGH BLEEDING
     Route: 042
     Dates: start: 20180630
  5. ELOCTATE [Suspect]
     Active Substance: EFMOROCTOCOG ALFA
     Dosage: 2000 U
     Route: 042
     Dates: start: 20180630
  6. ELOCTATE [Suspect]
     Active Substance: EFMOROCTOCOG ALFA
     Dosage: 2000 U
     Route: 042
     Dates: start: 20180630
  7. OMEPRAZOLE [Concomitant]
     Active Substance: OMEPRAZOLE
     Dosage: UNK
  8. OXYCODONE [Concomitant]
     Active Substance: OXYCODONE
     Dosage: UNK
  9. TYLENOL [Concomitant]
     Active Substance: ACETAMINOPHEN
     Dosage: UNK
  10. HEMLIBRA [Concomitant]
     Active Substance: EMICIZUMAB-KXWH
     Dosage: 105 MG/0.7ML SDV 1=1

REACTIONS (6)
  - Traumatic haemorrhage [Unknown]
  - Joint injury [Unknown]
  - Pain [Recovering/Resolving]
  - Traumatic haemorrhage [Not Recovered/Not Resolved]
  - Spontaneous haemorrhage [Unknown]
  - Loss of personal independence in daily activities [Unknown]

NARRATIVE: CASE EVENT DATE: 20240101
